FAERS Safety Report 5717411-4 (Version None)
Quarter: 2008Q2

REPORT INFORMATION
  Report Type: 
  Country: None (occurrence: None)
  Receive Date: 20080424
  Receipt Date: 20080424
  Transmission Date: 20081010
  Serious: Yes (Hospitalization)
  Sender: FDA-Public Use
  Company Number: None

PATIENT
  Sex: Male
  Weight: 79.7 kg

DRUGS (2)
  1. ZOSYN [Suspect]
     Indication: PNEUMONIA
     Dosage: 3.375 GM Q6H IV
     Route: 042
     Dates: start: 20080325, end: 20080415
  2. ZOSYN [Suspect]
     Indication: PNEUMONIA
     Dosage: 2.25 GM Q6H IV
     Route: 042
     Dates: start: 20080415, end: 20080422

REACTIONS (1)
  - AUTOIMMUNE THROMBOCYTOPENIA [None]
